FAERS Safety Report 10715644 (Version 1)
Quarter: 2015Q1

REPORT INFORMATION
  Report Type: Spontaneous
  Country: US (occurrence: US)
  Receive Date: 20150116
  Receipt Date: 20150116
  Transmission Date: 20150721
  Serious: Yes (Hospitalization)
  Sender: FDA-Public Use
  Company Number: US-ROCHE-1521071

PATIENT
  Age: 78 Year
  Sex: Female

DRUGS (11)
  1. TAMIFLU [Suspect]
     Active Substance: OSELTAMIVIR PHOSPHATE
     Indication: INFLUENZA
     Dosage: 5 DAY COURSE
     Route: 065
     Dates: start: 20141231
  2. VITAMIN B12 [Concomitant]
     Active Substance: CYANOCOBALAMIN
     Route: 060
  3. PREDNISONE. [Concomitant]
     Active Substance: PREDNISONE
     Indication: POLYMYALGIA RHEUMATICA
     Dosage: ON THIS DOSE FOR 2 YEARS
     Route: 065
  4. ELAVIL (UNITED STATES) [Concomitant]
     Indication: POLYMYALGIA RHEUMATICA
  5. NORVASC [Concomitant]
     Active Substance: AMLODIPINE BESYLATE
     Indication: HYPERTENSION
     Route: 065
  6. ELAVIL (UNITED STATES) [Concomitant]
     Indication: FIBROMYALGIA
  7. ADVIL [Concomitant]
     Active Substance: IBUPROFEN
     Indication: PAIN
  8. LISINOPRIL. [Concomitant]
     Active Substance: LISINOPRIL
     Indication: HYPERTENSION
     Route: 065
  9. ASPIRIN. [Concomitant]
     Active Substance: ASPIRIN
     Indication: TRANSIENT ISCHAEMIC ATTACK
     Route: 065
  10. VITAMIN C [Concomitant]
     Active Substance: ASCORBIC ACID
  11. PREDNISONE. [Concomitant]
     Active Substance: PREDNISONE
     Indication: FIBROMYALGIA

REACTIONS (15)
  - Oxygen saturation decreased [Unknown]
  - Epistaxis [Recovered/Resolved]
  - Thirst [Unknown]
  - Anaemia [Unknown]
  - Delirium [Recovered/Resolved]
  - Aggression [Recovered/Resolved]
  - Weight decreased [Unknown]
  - Hallucination [Recovered/Resolved]
  - Confusional state [Recovered/Resolved]
  - Haemorrhage [Recovered/Resolved]
  - Pneumonia [Unknown]
  - Suicidal ideation [Recovered/Resolved]
  - Blood pressure decreased [Unknown]
  - Abnormal behaviour [Recovered/Resolved]
  - Urticaria [Recovered/Resolved]

NARRATIVE: CASE EVENT DATE: 20150101
